FAERS Safety Report 15829073 (Version 1)
Quarter: 2019Q1

REPORT INFORMATION
  Report Type: Spontaneous
  Country: CA (occurrence: CA)
  Receive Date: 20190115
  Receipt Date: 20190115
  Transmission Date: 20190417
  Serious: Yes (Other)
  Sender: FDA-Public Use
  Company Number: PHHY2019CA003902

PATIENT
  Sex: Male

DRUGS (2)
  1. HALOPERIDOL INJ USP [Suspect]
     Active Substance: HALOPERIDOL
     Indication: ANAEMIA
  2. HALOPERIDOL INJ USP [Suspect]
     Active Substance: HALOPERIDOL
     Indication: BIPOLAR DISORDER
     Dosage: 100 MG, UNK (EVERY 28 DAYS)
     Route: 065
     Dates: start: 1981

REACTIONS (8)
  - Feeling cold [Not Recovered/Not Resolved]
  - Hypothermia [Not Recovered/Not Resolved]
  - Restlessness [Not Recovered/Not Resolved]
  - Photosensitivity reaction [Unknown]
  - Salivary hypersecretion [Not Recovered/Not Resolved]
  - Dysstasia [Not Recovered/Not Resolved]
  - Dysphagia [Not Recovered/Not Resolved]
  - Dyskinesia [Not Recovered/Not Resolved]

NARRATIVE: CASE EVENT DATE: 1980
